FAERS Safety Report 16999184 (Version 3)
Quarter: 2019Q4

REPORT INFORMATION
  Report Type: Spontaneous
  Country: PT (occurrence: PT)
  Receive Date: 20191106
  Receipt Date: 20191119
  Transmission Date: 20200122
  Serious: Yes (Life-Threatening, Other)
  Sender: FDA-Public Use
  Company Number: PT-SA-2019SA305943

PATIENT
  Sex: Male

DRUGS (1)
  1. AUBAGIO [Suspect]
     Active Substance: TERIFLUNOMIDE
     Indication: RELAPSING-REMITTING MULTIPLE SCLEROSIS
     Dosage: 14 MG, QD
     Dates: start: 201906

REACTIONS (4)
  - Hemiparesis [Not Recovered/Not Resolved]
  - Condition aggravated [Unknown]
  - Glioblastoma multiforme [Not Recovered/Not Resolved]
  - Hemiparesis [Unknown]
